FAERS Safety Report 8053901-X (Version None)
Quarter: 2012Q1

REPORT INFORMATION
  Report Type: 
  Country: None (occurrence: None)
  Receive Date: 20120118
  Receipt Date: 20120106
  Transmission Date: 20120608
  Serious: Yes (Disabling, Other)
  Sender: FDA-Public Use
  Company Number: FR-ELI_LILLY_AND_COMPANY-FR201201001585

PATIENT
  Sex: Male

DRUGS (9)
  1. GEMZAR [Suspect]
     Indication: BRONCHIAL CARCINOMA
     Dosage: UNK, UNKNOWN
     Route: 042
  2. CISPLATIN [Concomitant]
     Dosage: UNK, UNKNOWN
  3. AVASTIN [Concomitant]
     Dosage: UNK, UNKNOWN
  4. PLAVIX [Concomitant]
     Route: 048
  5. MOTILIUM [Concomitant]
  6. ZOFRAN [Concomitant]
     Dosage: UNK, UNKNOWN
  7. ACETAMINOPHEN [Concomitant]
     Dosage: UNK, UNKNOWN
  8. VALSARTAN  AND HYDROCHLOROTHIAZIDE [Concomitant]
     Route: 048
  9. ALLOPURINOL [Concomitant]
     Dosage: 100 MG, QD
     Route: 048

REACTIONS (5)
  - VENTRICULAR HYPOKINESIA [None]
  - ANGINA UNSTABLE [None]
  - NAUSEA [None]
  - PERICARDITIS [None]
  - BRONCHITIS [None]
